APPROVED DRUG PRODUCT: KETOPROFEN
Active Ingredient: KETOPROFEN
Strength: 25MG
Dosage Form/Route: CAPSULE;ORAL
Application: A073515 | Product #001
Applicant: TEVA PHARMACEUTICALS USA INC
Approved: Dec 22, 1992 | RLD: No | RS: No | Type: DISCN